FAERS Safety Report 10616530 (Version 2)
Quarter: 2014Q4

REPORT INFORMATION
  Report Type: Spontaneous
  Country: BR (occurrence: BR)
  Receive Date: 20141201
  Receipt Date: 20141210
  Transmission Date: 20150529
  Serious: Yes (Other)
  Sender: FDA-Public Use
  Company Number: BR-BRISTOL-MYERS SQUIBB COMPANY-21654421

PATIENT
  Sex: Female
  Weight: 56 kg

DRUGS (7)
  1. VITAMINS [Concomitant]
     Active Substance: VITAMINS
     Route: 048
  2. DETRUSITOL [Concomitant]
     Active Substance: TOLTERODINE TARTRATE
     Route: 048
  3. OSCAL [Concomitant]
     Active Substance: CALCIUM CARBONATE
     Route: 048
  4. GLUCOSAMINE [Concomitant]
     Active Substance: GLUCOSAMINE
     Route: 048
  5. FORXIGA [Suspect]
     Active Substance: DAPAGLIFLOZIN
     Indication: TYPE 2 DIABETES MELLITUS
     Dosage: 10 MG, UNK
     Route: 048
     Dates: start: 201407, end: 20141119
  6. JANUVIA [Concomitant]
     Active Substance: SITAGLIPTIN PHOSPHATE
     Indication: TYPE 2 DIABETES MELLITUS
     Route: 048
  7. AMARYL [Concomitant]
     Active Substance: GLIMEPIRIDE
     Indication: TYPE 2 DIABETES MELLITUS
     Route: 048

REACTIONS (5)
  - Asthenia [Not Recovered/Not Resolved]
  - Toxicity to various agents [Recovering/Resolving]
  - Anaemia [Not Recovered/Not Resolved]
  - Hyperglycaemia [Not Recovered/Not Resolved]
  - Arthropathy [Not Recovered/Not Resolved]

NARRATIVE: CASE EVENT DATE: 2014
